FAERS Safety Report 22355904 (Version 2)
Quarter: 2023Q2

REPORT INFORMATION
  Report Type: Spontaneous
  Country: CA (occurrence: CA)
  Receive Date: 20230523
  Receipt Date: 20230601
  Transmission Date: 20230722
  Serious: Yes (Hospitalization, Other)
  Sender: FDA-Public Use
  Company Number: CA-002147023-NVSC2023CA113059

PATIENT
  Age: 69 Year
  Sex: Male

DRUGS (38)
  1. DEXAMETHASONE [Suspect]
     Active Substance: DEXAMETHASONE
     Indication: Premedication
     Dosage: UNK
     Route: 042
  2. DEXAMETHASONE [Suspect]
     Active Substance: DEXAMETHASONE
     Dosage: UNK (SOLUTION INTRA-ARTICULAR)
     Route: 048
  3. DEXAMETHASONE SODIUM PHOSPHATE [Suspect]
     Active Substance: DEXAMETHASONE SODIUM PHOSPHATE
     Indication: Premedication
     Dosage: UNK
     Route: 042
  4. DEXAMETHASONE SODIUM PHOSPHATE [Suspect]
     Active Substance: DEXAMETHASONE SODIUM PHOSPHATE
     Indication: Premedication
     Dosage: UNK (SOLUTION INTRA-ARTICULAR)
     Route: 048
  5. NAPROXEN [Suspect]
     Active Substance: NAPROXEN
     Indication: Premedication
     Dosage: UNK
     Route: 065
  6. NAPROXEN [Suspect]
     Active Substance: NAPROXEN
     Indication: Seronegative arthritis
  7. PREDNISOLONE [Suspect]
     Active Substance: PREDNISOLONE
     Indication: Gout
     Dosage: 15 MG, QD
     Route: 048
  8. PREDNISOLONE [Suspect]
     Active Substance: PREDNISOLONE
     Indication: Seronegative arthritis
     Dosage: UNK
     Route: 065
  9. PREDNISOLONE [Suspect]
     Active Substance: PREDNISOLONE
     Indication: Arthritis
     Dosage: UNK
     Route: 065
  10. PREDNISOLONE [Suspect]
     Active Substance: PREDNISOLONE
     Dosage: UNK
     Route: 065
  11. PREDNISOLONE [Suspect]
     Active Substance: PREDNISOLONE
     Dosage: UNK
     Route: 065
  12. PREDNISOLONE [Suspect]
     Active Substance: PREDNISOLONE
     Dosage: 15 MG
     Route: 065
  13. PREDNISOLONE [Suspect]
     Active Substance: PREDNISOLONE
     Dosage: UNK
     Route: 048
  14. PREDNISOLONE [Suspect]
     Active Substance: PREDNISOLONE
     Dosage: UNK
     Route: 048
  15. LEUCOVORIN CALCIUM [Suspect]
     Active Substance: LEUCOVORIN CALCIUM
     Indication: Panniculitis
     Dosage: UNK
     Route: 065
  16. LEUCOVORIN CALCIUM [Suspect]
     Active Substance: LEUCOVORIN CALCIUM
     Indication: Metastases to liver
     Dosage: UNK
     Route: 065
  17. LEUCOVORIN CALCIUM [Suspect]
     Active Substance: LEUCOVORIN CALCIUM
     Indication: Acinar cell carcinoma of pancreas
     Dosage: 4400 MG/M2, CYCLIC
     Route: 065
  18. FLUOROURACIL [Concomitant]
     Active Substance: FLUOROURACIL
     Indication: Panniculitis
     Dosage: 4200 MG/M2, Q2W
     Route: 065
  19. FLUOROURACIL [Concomitant]
     Active Substance: FLUOROURACIL
     Indication: Acinar cell carcinoma of pancreas
     Dosage: UNK
     Route: 065
  20. FLUOROURACIL [Concomitant]
     Active Substance: FLUOROURACIL
     Indication: Metastases to liver
     Dosage: UNK
     Route: 065
  21. FLUOROURACIL [Concomitant]
     Active Substance: FLUOROURACIL
     Dosage: 46200 MG/M2, CYCLIC
     Route: 042
  22. FLUOROURACIL [Concomitant]
     Active Substance: FLUOROURACIL
     Dosage: 4200 MG/M2
     Route: 065
  23. OXALIPLATIN [Concomitant]
     Active Substance: OXALIPLATIN
     Indication: Panniculitis
     Dosage: 65 MG/M2, Q2W
     Route: 065
  24. OXALIPLATIN [Concomitant]
     Active Substance: OXALIPLATIN
     Indication: Acinar cell carcinoma of pancreas
     Dosage: 715 MG/M2, CYCLIC
     Route: 042
  25. OXALIPLATIN [Concomitant]
     Active Substance: OXALIPLATIN
     Indication: Metastases to liver
     Dosage: UNK
     Route: 065
  26. OXALIPLATIN [Concomitant]
     Active Substance: OXALIPLATIN
     Dosage: UNK
     Route: 065
  27. OXALIPLATIN [Concomitant]
     Active Substance: OXALIPLATIN
     Dosage: 65.0 MG/M2
     Route: 065
  28. LEUCOVORIN [Concomitant]
     Active Substance: LEUCOVORIN
     Indication: Panniculitis
     Dosage: UNK
     Route: 065
  29. LEUCOVORIN [Concomitant]
     Active Substance: LEUCOVORIN
     Indication: Acinar cell carcinoma of pancreas
     Dosage: 400 MG/M2, CYCLIC
     Route: 042
  30. LEUCOVORIN [Concomitant]
     Active Substance: LEUCOVORIN
     Indication: Metastases to liver
     Dosage: UNK
     Route: 065
  31. LEUCOVORIN [Concomitant]
     Active Substance: LEUCOVORIN
     Dosage: UNK
     Route: 065
  32. LEUCOVORIN [Concomitant]
     Active Substance: LEUCOVORIN
     Dosage: 400 MG/M2, Q2W
     Route: 042
  33. LEUCOVORIN [Concomitant]
     Active Substance: LEUCOVORIN
     Dosage: 400 MG/M2
     Route: 065
  34. IRINOTECAN [Concomitant]
     Active Substance: IRINOTECAN
     Indication: Panniculitis
     Dosage: UNK
     Route: 065
  35. IRINOTECAN [Concomitant]
     Active Substance: IRINOTECAN
     Indication: Acinar cell carcinoma of pancreas
     Dosage: 120 MG/M2, Q2W
     Route: 065
  36. IRINOTECAN [Concomitant]
     Active Substance: IRINOTECAN
     Indication: Metastases to liver
     Dosage: 1320 MG/M2, CYCLIC
     Route: 042
  37. IRINOTECAN [Concomitant]
     Active Substance: IRINOTECAN
     Dosage: UNK
     Route: 065
  38. IRINOTECAN [Concomitant]
     Active Substance: IRINOTECAN
     Dosage: 120 MG/M2 (SOLUTION IV)
     Route: 065

REACTIONS (11)
  - Psychotic disorder [Recovered/Resolved]
  - Abdominal discomfort [Recovered/Resolved]
  - Decreased appetite [Recovered/Resolved]
  - Substance-induced psychotic disorder [Recovered/Resolved]
  - Weight decreased [Recovered/Resolved]
  - Off label use [Recovered/Resolved]
  - Confusional state [Unknown]
  - Polyarthritis [Unknown]
  - Pyrexia [Unknown]
  - Neurotoxicity [Unknown]
  - Peripheral sensory neuropathy [Recovered/Resolved]
